FAERS Safety Report 5749716-5 (Version None)
Quarter: 2008Q2

REPORT INFORMATION
  Report Type: 
  Country: None (occurrence: None)
  Receive Date: 20080527
  Receipt Date: 20080519
  Transmission Date: 20081010
  Serious: Yes (Hospitalization)
  Sender: FDA-Public Use
  Company Number: FR-ASTRAZENECA-2008CG00734

PATIENT
  Age: 32030 Day
  Sex: Female

DRUGS (10)
  1. ATACAND [Suspect]
     Indication: HYPERTENSION
     Route: 048
     Dates: start: 20070216, end: 20070312
  2. SINTROM [Suspect]
     Indication: ARRHYTHMIA
     Route: 048
     Dates: end: 20070311
  3. ATROVENT [Suspect]
     Indication: ASTHMA
     Dates: end: 20070310
  4. FORLAX [Suspect]
     Indication: CONSTIPATION
     Route: 048
     Dates: end: 20070319
  5. LANSOYL [Suspect]
     Indication: CONSTIPATION
     Route: 048
     Dates: end: 20070319
  6. MOPRAL [Concomitant]
     Route: 048
  7. LASILIX [Concomitant]
     Indication: HYPERTENSION
     Route: 048
     Dates: end: 20070312
  8. HEMIGOXINE [Concomitant]
     Dosage: 1 DF DAILY EXCEPTED WEDNESDAY AND SUNDAY
  9. ALLOPURINOL [Concomitant]
  10. PANTOPRAZOLE SODIUM [Concomitant]

REACTIONS (1)
  - HAEMOTHORAX [None]
